FAERS Safety Report 8829989 (Version 1)
Quarter: 2012Q4

REPORT INFORMATION
  Report Type: 
  Country: US (occurrence: US)
  Receive Date: 20121008
  Receipt Date: 20121008
  Transmission Date: 20130627
  Serious: Yes (Other)
  Sender: FDA-Public Use
  Company Number: PHEH2012US012999

PATIENT
  Age: 55 Year
  Sex: Male

DRUGS (5)
  1. GILENYA [Suspect]
     Indication: MULTIPLE SCLEROSIS
     Dosage: 0.5 mg, QD
     Route: 048
     Dates: start: 20120524, end: 20120620
  2. TYSABRI [Concomitant]
     Indication: MULTIPLE SCLEROSIS
     Dosage: 300 mg, QMO
     Route: 042
     Dates: start: 200710, end: 2012
  3. METHOTREXATE [Concomitant]
     Indication: ANKYLOSING SPONDYLITIS
     Route: 048
  4. PRAVASTATIN [Concomitant]
     Indication: HYPERLIPIDAEMIA
     Dosage: 20 mg, QD
     Route: 048
  5. METFORMIN [Concomitant]
     Indication: TYPE 2 DIABETES MELLITUS
     Dosage: 500 mg, BID
     Route: 048

REACTIONS (14)
  - Nuclear magnetic resonance imaging abnormal [Unknown]
  - Central nervous system lesion [Unknown]
  - Cerebellar atrophy [Unknown]
  - Cerebral atrophy [Unknown]
  - Cystoid macular oedema [Recovering/Resolving]
  - Visual impairment [Unknown]
  - Scotoma [Unknown]
  - Vision blurred [Unknown]
  - Multiple sclerosis relapse [Recovering/Resolving]
  - Balance disorder [Unknown]
  - Confusional state [Unknown]
  - Hypoaesthesia [Unknown]
  - Muscular weakness [Unknown]
  - Gait disturbance [Unknown]
